FAERS Safety Report 14511344 (Version 1)
Quarter: 2018Q1

REPORT INFORMATION
  Report Type: Spontaneous
  Country: FR (occurrence: FR)
  Receive Date: 20180209
  Receipt Date: 20180209
  Transmission Date: 20180509
  Serious: Yes (Hospitalization, Other)
  Sender: FDA-Public Use
  Company Number: FR-INDIVIOR LIMITED-INDV-108859-2018

PATIENT
  Age: 46 Year
  Sex: Male
  Weight: 64.6 kg

DRUGS (1)
  1. SUBUTEX [Suspect]
     Active Substance: BUPRENORPHINE HYDROCHLORIDE
     Indication: DRUG ABUSE
     Dosage: UNK
     Route: 048
     Dates: end: 20160822

REACTIONS (4)
  - Intentional product misuse [Recovered/Resolved]
  - Product use issue [Recovered/Resolved]
  - Loss of consciousness [Recovered/Resolved]
  - Drug dependence [Recovered/Resolved]

NARRATIVE: CASE EVENT DATE: 20160822
